FAERS Safety Report 15076971 (Version 1)
Quarter: 2018Q2

REPORT INFORMATION
  Report Type: Spontaneous
  Country: JP (occurrence: JP)
  Receive Date: 20180627
  Receipt Date: 20180627
  Transmission Date: 20180711
  Serious: Yes (Death)
  Sender: FDA-Public Use
  Company Number: JP-PFIZER INC-2018255287

PATIENT
  Age: 8 Decade
  Sex: Female

DRUGS (1)
  1. SOMAVERT [Suspect]
     Active Substance: PEGVISOMANT
     Dosage: 10 MG, DAILY
     Route: 058

REACTIONS (2)
  - Cardiac failure [Fatal]
  - Disease progression [Fatal]

NARRATIVE: CASE EVENT DATE: 2018
